FAERS Safety Report 25408365 (Version 1)
Quarter: 2025Q2

REPORT INFORMATION
  Report Type: Spontaneous
  Country: US (occurrence: US)
  Receive Date: 20250606
  Receipt Date: 20250606
  Transmission Date: 20250717
  Serious: No
  Sender: SANOFI AVENTIS
  Company Number: US-SA-2025SA160903

PATIENT
  Age: 84 Year
  Sex: Female
  Weight: 82.27 kg

DRUGS (22)
  1. KEVZARA [Suspect]
     Active Substance: SARILUMAB
     Indication: Rheumatoid arthritis
     Dosage: 200 MG, QOW
     Route: 058
     Dates: start: 20220308
  2. TRAMADOL HCL [Concomitant]
     Active Substance: TRAMADOL HYDROCHLORIDE
  3. CEPHALEXIN [Concomitant]
     Active Substance: CEPHALEXIN
  4. ESTRADIOL [Concomitant]
     Active Substance: ESTRADIOL
  5. RESTASIS [Concomitant]
     Active Substance: CYCLOSPORINE
  6. PRAVASTATIN SODIUM [Concomitant]
     Active Substance: PRAVASTATIN SODIUM
  7. CYCLOBENZAPRINE HYDROCHLORIDE [Concomitant]
     Active Substance: CYCLOBENZAPRINE HYDROCHLORIDE
  8. LYRICA [Concomitant]
     Active Substance: PREGABALIN
  9. ATENOLOL [Concomitant]
     Active Substance: ATENOLOL
  10. CRANBERRY [Concomitant]
     Active Substance: CRANBERRY
  11. PREDNISONE [Concomitant]
     Active Substance: PREDNISONE
  12. ASPIRIN [Concomitant]
     Active Substance: ASPIRIN
  13. VITAMINS [Concomitant]
     Active Substance: VITAMINS
  14. DEMANNOSE [Concomitant]
     Active Substance: DEMANNOSE
  15. HYDROXYCHLOROQUINE SULFATE [Concomitant]
     Active Substance: HYDROXYCHLOROQUINE SULFATE
  16. OMEGA-3 FATTY ACIDS [Concomitant]
     Active Substance: OMEGA-3 FATTY ACIDS
  17. VITAMIN D3 [Concomitant]
     Active Substance: CHOLECALCIFEROL
  18. CITRACAL PLUS D [Concomitant]
  19. OMEPRAZOLE [Concomitant]
     Active Substance: OMEPRAZOLE
  20. VALSARTAN [Concomitant]
     Active Substance: VALSARTAN
  21. SYNTHROID [Concomitant]
     Active Substance: LEVOTHYROXINE SODIUM
  22. SYNTHROID [Concomitant]
     Active Substance: LEVOTHYROXINE SODIUM

REACTIONS (1)
  - Peripheral swelling [Unknown]
